FAERS Safety Report 4843495-1 (Version None)
Quarter: 2005Q4

REPORT INFORMATION
  Report Type: 
  Country: None (occurrence: None)
  Receive Date: 20051202
  Receipt Date: 20051112
  Transmission Date: 20060501
  Serious: No
  Sender: FDA-Public Use
  Company Number: PHRM2005FR02961

PATIENT
  Age: 57 Year
  Sex: Male

DRUGS (7)
  1. NEORAL [Suspect]
     Indication: RENAL TRANSPLANT
     Dosage: 75 MG IN THE MORNING, 50 MG IN THE EVENING
     Route: 048
  2. CORTANCYL [Concomitant]
  3. FUROSEMIDE [Concomitant]
  4. TARDYFERON [Concomitant]
  5. HUMALOG [Concomitant]
  6. COVERSYL /FRA/ [Concomitant]
  7. EFFERALGAN [Concomitant]

REACTIONS (3)
  - FACE OEDEMA [None]
  - HYPERSENSITIVITY [None]
  - TONGUE OEDEMA [None]
